FAERS Safety Report 9667386 (Version 2)
Quarter: 2013Q4

REPORT INFORMATION
  Report Type: Spontaneous
  Country: ES (occurrence: None)
  Receive Date: 20131031
  Receipt Date: 20131129
  Transmission Date: 20140711
  Serious: Yes (Hospitalization)
  Sender: FDA-Public Use
  Company Number: AUR-APL-2013-09056

PATIENT
  Age: 65 Year
  Sex: Female

DRUGS (6)
  1. AMLODIPINE (AMLODIPINE) [Suspect]
     Indication: HYPERTENSION
     Dosage: 10MG (10MG, 1 IN 1 D) ORAL
     Route: 048
     Dates: start: 201105
  2. LOSARTAN (LOSARTAN) [Suspect]
     Indication: HYPERTENSION
     Dosage: 50MG, (50MG, 1 IN 1 D) ORAL
     Route: 048
     Dates: start: 201105
  3. GABAPENTIN (GABAPENTIN) [Concomitant]
     Indication: HYPERTENSION
  4. LORMETAZEPAM (LORMETAZEPAM) [Concomitant]
  5. ALDACTONE (SPIRONOLACTONE) [Suspect]
     Indication: ASCITES
     Dosage: 100MG (100MG 1 IN 1D) ORAL
     Route: 048
     Dates: start: 201205, end: 201207
  6. FUROSEMIDE (FUROSEMIDE) [Suspect]
     Indication: ASCITES

REACTIONS (6)
  - Drug interaction [None]
  - Hyperkalaemia [None]
  - Renal failure acute [None]
  - Hyponatraemia [None]
  - Blood pressure decreased [None]
  - Proteus test positive [None]
